FAERS Safety Report 5004980-5 (Version None)
Quarter: 2006Q1

REPORT INFORMATION
  Report Type: 
  Country: None (occurrence: None)
  Receive Date: 20060321
  Receipt Date: 20060201
  Transmission Date: 20060701
  Serious: No
  Sender: FDA-Public Use
  Company Number: YPA20050583

PATIENT
  Sex: Female

DRUGS (1)
  1. VESICARE [Suspect]
     Dosage: 5 MG, TOTAL DOSE
     Dates: start: 20051105, end: 20051105

REACTIONS (2)
  - RASH [None]
  - URTICARIA [None]
